FAERS Safety Report 19460032 (Version 1)
Quarter: 2021Q2

REPORT INFORMATION
  Report Type: Spontaneous
  Country: RU (occurrence: RU)
  Receive Date: 20210625
  Receipt Date: 20210625
  Transmission Date: 20210717
  Serious: Yes (Hospitalization, Other)
  Sender: FDA-Public Use
  Company Number: RU-SCIEGENPHARMA-2020SCILIT00310

PATIENT
  Age: 62 Year
  Sex: Female

DRUGS (10)
  1. HEPA?MERZ (ORNITHINE ASPARTATE) [Interacting]
     Active Substance: ORNITHINE ASPARTATE
     Indication: ASPARTATE AMINOTRANSFERASE INCREASED
     Route: 065
  2. ATORVASTATIN CALCIUM. [Suspect]
     Active Substance: ATORVASTATIN CALCIUM
     Indication: ACUTE MYOCARDIAL INFARCTION
     Dosage: IN THE EVENING
     Route: 065
  3. TICAGRELOR. [Concomitant]
     Active Substance: TICAGRELOR
     Indication: ACUTE MYOCARDIAL INFARCTION
     Route: 065
  4. CARVEDILOL. [Concomitant]
     Active Substance: CARVEDILOL
     Indication: ACUTE MYOCARDIAL INFARCTION
     Route: 065
  5. OMEPRAZOLE. [Concomitant]
     Active Substance: OMEPRAZOLE
     Indication: ACUTE MYOCARDIAL INFARCTION
     Route: 065
  6. HEPTRAL [Interacting]
     Active Substance: ADEMETIONINE
     Indication: HEPATOTOXICITY
     Route: 065
  7. ENALAPRIL [Concomitant]
     Active Substance: ENALAPRIL
     Indication: ACUTE MYOCARDIAL INFARCTION
     Route: 065
  8. ASPIRIN (ACETYLSALICYLIC ACID) [Concomitant]
     Active Substance: ASPIRIN
     Indication: ACUTE MYOCARDIAL INFARCTION
     Route: 065
  9. SPIRONOLACTONE. [Concomitant]
     Active Substance: SPIRONOLACTONE
     Indication: ACUTE MYOCARDIAL INFARCTION
     Route: 065
  10. HEPA?MERZ (ORNITHINE ASPARTATE) [Interacting]
     Active Substance: ORNITHINE ASPARTATE
     Indication: ALANINE AMINOTRANSFERASE INCREASED

REACTIONS (3)
  - Hepatotoxicity [Recovering/Resolving]
  - Rash [Recovering/Resolving]
  - Diarrhoea [Recovering/Resolving]
